FAERS Safety Report 7122429-3 (Version None)
Quarter: 2010Q4

REPORT INFORMATION
  Report Type: 
  Country: None (occurrence: None)
  Receive Date: 20101122
  Receipt Date: 20101122
  Transmission Date: 20110411
  Serious: Yes (Life-Threatening, Hospitalization)
  Sender: FDA-Public Use
  Company Number: None

PATIENT
  Age: 83 Year
  Sex: Male
  Weight: 88.5 kg

DRUGS (1)
  1. GLYCOPYRROLATE [Suspect]
     Indication: SECRETION DISCHARGE
     Dosage: 1 MG QID PO
     Route: 048
     Dates: start: 20091026, end: 20100830

REACTIONS (2)
  - ATRIOVENTRICULAR BLOCK COMPLETE [None]
  - BRADYCARDIA [None]
